FAERS Safety Report 7802591-7 (Version None)
Quarter: 2011Q4

REPORT INFORMATION
  Report Type: 
  Country: None (occurrence: None)
  Receive Date: 20111007
  Receipt Date: 20110926
  Transmission Date: 20120403
  Serious: Yes (Hospitalization)
  Sender: FDA-Public Use
  Company Number: US-ROCHE-802539

PATIENT
  Sex: Female
  Weight: 59.8 kg

DRUGS (6)
  1. LEVOTHYROXINE SODIUM [Concomitant]
     Route: 048
  2. CARBOPLATIN [Suspect]
     Indication: BREAST CANCER METASTATIC
  3. AVASTIN [Suspect]
     Indication: BREAST CANCER METASTATIC
  4. HERCEPTIN [Suspect]
     Indication: BREAST CANCER METASTATIC
  5. LORAZEPAM [Concomitant]
     Route: 048
  6. DEXAMETHASONE [Concomitant]
     Route: 048

REACTIONS (1)
  - PNEUMOTHORAX [None]
